FAERS Safety Report 26009925 (Version 1)
Quarter: 2025Q4

REPORT INFORMATION
  Report Type: Report from Study
  Country: ZA (occurrence: ZA)
  Receive Date: 20251107
  Receipt Date: 20251107
  Transmission Date: 20260117
  Serious: Yes (Other)
  Sender: ROCHE
  Company Number: ZA-ROCHE-10000394385

PATIENT
  Sex: Male

DRUGS (1)
  1. OCREVUS [Suspect]
     Active Substance: OCRELIZUMAB
     Indication: Multiple sclerosis
     Dosage: THEREAFTER 300MG EVERY AFTER 6 MONTHS
     Route: 042
     Dates: start: 20230530

REACTIONS (5)
  - Spinal flattening [Unknown]
  - Cervical spinal stenosis [Unknown]
  - Spinal stenosis [Unknown]
  - Muscle spasms [Unknown]
  - Malaise [Unknown]
